FAERS Safety Report 9631352 (Version 1)
Quarter: 2013Q4

REPORT INFORMATION
  Report Type: Spontaneous
  Country: FR (occurrence: None)
  Receive Date: 20131011
  Receipt Date: 20131011
  Transmission Date: 20140711
  Serious: Yes (Death, Congenital Anomaly, Other)
  Sender: FDA-Public Use
  Company Number: AUR-APL-2013-08247

PATIENT
  Sex: Male

DRUGS (3)
  1. BISOPROLOL (BISOPROLOL) [Suspect]
     Indication: HYPERTENSION
     Dosage: 1 DOSAGE FORMS (1 DOSAGE FORMS, 1 IN 1 D), TRANSPLACENTAL
  2. PAROXETINE (PAROXETINE) [Suspect]
     Indication: DEPRESSION
     Route: 064
  3. XANAX (ALPRAZOLAM) [Suspect]
     Indication: ANXIETY
     Dosage: 1 MG (0.5MG, 2 IN 1 D ), TRANSPLACENTAL
     Route: 064

REACTIONS (9)
  - Pregnancy [None]
  - Arnold-Chiari malformation [None]
  - Congenital anomaly [None]
  - Foetal death [None]
  - Abortion induced [None]
  - Neural tube defect [None]
  - Brain herniation [None]
  - Cerebral ventricle dilatation [None]
  - Maternal exposure before pregnancy [None]
